FAERS Safety Report 23392799 (Version 3)
Quarter: 2024Q2

REPORT INFORMATION
  Report Type: Spontaneous
  Country: US (occurrence: US)
  Receive Date: 20240111
  Receipt Date: 20240629
  Transmission Date: 20240715
  Serious: Yes (Other)
  Sender: FDA-Public Use
  Company Number: US-REGENERON PHARMACEUTICALS, INC.-2023-112974

PATIENT
  Sex: Male

DRUGS (3)
  1. EYLEA [Suspect]
     Active Substance: AFLIBERCEPT
     Indication: Neovascular age-related macular degeneration
     Dosage: 2 MG, EVERY 5-6 WEEKS, INTO BOTH EYES (FORMULATION: PFS GERRESHEIMER, STRENGTH: 2MG/0.05ML)
     Dates: start: 20210108
  2. EYLEA [Suspect]
     Active Substance: AFLIBERCEPT
     Dosage: 2 MG, EVERY 5-6 WEEKS, INTO BOTH EYES (FORMULATION: PFS GERRESHEIMER, STRENGTH: 2MG/0.05ML)
     Dates: start: 20220603
  3. EYLEA [Suspect]
     Active Substance: AFLIBERCEPT
     Dosage: 2 MG, EVERY 5-6 WEEKS, INTO BOTH EYES (FORMULATION: PFS GERRESHEIMER, STRENGTH: 2MG/0.05ML)
     Dates: start: 20240522

REACTIONS (2)
  - Intra-ocular injection complication [Recovered/Resolved]
  - Visual impairment [Recovered/Resolved]
